FAERS Safety Report 8337649-X (Version None)
Quarter: 2012Q2

REPORT INFORMATION
  Report Type: 
  Country: None (occurrence: None)
  Receive Date: 20120504
  Receipt Date: 20120504
  Transmission Date: 20120825
  Serious: Yes (Hospitalization, Other)
  Sender: FDA-Public Use
  Company Number: None

PATIENT
  Age: 35 Year
  Sex: Female
  Weight: 61.234 kg

DRUGS (1)
  1. REGLAN [Suspect]
     Indication: SUPPRESSED LACTATION
     Dosage: |DOSAGETEXT: 10 MG||STRENGTH: 10MG TAB||FREQ: 3X DAY||ROUTE: ORAL|
     Route: 048
     Dates: start: 20111001, end: 20111231

REACTIONS (11)
  - DEPRESSION [None]
  - TREMOR [None]
  - ACTIVITIES OF DAILY LIVING IMPAIRED [None]
  - PARAESTHESIA [None]
  - FATIGUE [None]
  - DRUG WITHDRAWAL SYNDROME [None]
  - ANXIETY [None]
  - INFLUENZA LIKE ILLNESS [None]
  - ABNORMAL BEHAVIOUR [None]
  - AGITATION [None]
  - DRUG EFFECT DECREASED [None]
